FAERS Safety Report 7587941-1 (Version None)
Quarter: 2011Q3

REPORT INFORMATION
  Report Type: 
  Country: None (occurrence: None)
  Receive Date: 20110705
  Receipt Date: 20110629
  Transmission Date: 20111222
  Serious: No
  Sender: FDA-Public Use
  Company Number: CA-PFIZER INC-2011146758

PATIENT
  Age: 51 Year
  Sex: Female

DRUGS (1)
  1. CELEBREX [Suspect]
     Dosage: UNK

REACTIONS (3)
  - MUSCULOSKELETAL DISCOMFORT [None]
  - JOINT STIFFNESS [None]
  - JOINT SWELLING [None]
